FAERS Safety Report 9986444 (Version 1)
Quarter: 2014Q1

REPORT INFORMATION
  Report Type: Spontaneous
  Country: US (occurrence: US)
  Receive Date: 20140307
  Receipt Date: 20140307
  Transmission Date: 20141002
  Serious: Yes (Other)
  Sender: FDA-Public Use
  Company Number: US-FRI-1000054927

PATIENT
  Sex: Female

DRUGS (4)
  1. ARMOUR THYROID [Suspect]
     Dosage: 180 MG
     Route: 048
     Dates: start: 1974
  2. ARMOUR THYROID [Suspect]
     Dosage: 90 MG
     Route: 048
  3. ARMOUR THYROID [Suspect]
     Dosage: 90 MG
     Route: 048
  4. ALTACE [Concomitant]

REACTIONS (5)
  - Upper limb fracture [Recovering/Resolving]
  - Clavicle fracture [Recovering/Resolving]
  - Fall [Recovered/Resolved]
  - Fatigue [Not Recovered/Not Resolved]
  - Irritability [Not Recovered/Not Resolved]
